FAERS Safety Report 9212573 (Version 2)
Quarter: 2013Q2

REPORT INFORMATION
  Report Type: Spontaneous
  Country: US (occurrence: US)
  Receive Date: 20130405
  Receipt Date: 20130426
  Transmission Date: 20140414
  Serious: Yes (Hospitalization)
  Sender: FDA-Public Use
  Company Number: US-BIOGENIDEC-2013BI029696

PATIENT
  Age: 50 Year
  Sex: Female

DRUGS (5)
  1. AVONEX [Suspect]
     Indication: MULTIPLE SCLEROSIS
     Route: 030
     Dates: start: 20100915, end: 2011
  2. AVONEX [Suspect]
     Indication: MULTIPLE SCLEROSIS
     Route: 030
     Dates: start: 2012
  3. HEPARIN INJECTION [Concomitant]
     Indication: THROMBOSIS PROPHYLAXIS
     Route: 058
     Dates: start: 20130223
  4. FENTANYL PATCH [Concomitant]
     Indication: PAIN IN EXTREMITY
     Route: 061
  5. ENDOCET 10/325 MG [Concomitant]
     Indication: PAIN IN EXTREMITY

REACTIONS (12)
  - Clostridium difficile infection [Recovered/Resolved]
  - Heart rate decreased [Recovered/Resolved]
  - Hypertension [Recovered/Resolved]
  - Impaired gastric emptying [Recovered/Resolved]
  - Hypersensitivity [Recovered/Resolved]
  - Large intestine polyp [Recovered/Resolved]
  - Hypotonia [Not Recovered/Not Resolved]
  - Visual impairment [Not Recovered/Not Resolved]
  - Gait disturbance [Not Recovered/Not Resolved]
  - Skin mass [Recovered/Resolved]
  - Memory impairment [Not Recovered/Not Resolved]
  - Depressed mood [Recovered/Resolved]
